FAERS Safety Report 4317073-7 (Version None)
Quarter: 2004Q1

REPORT INFORMATION
  Report Type: 
  Country: None (occurrence: None)
  Receive Date: 20040312
  Receipt Date: 20040303
  Transmission Date: 20041129
  Serious: Yes (Hospitalization)
  Sender: FDA-Public Use
  Company Number: 200410128BFR

PATIENT
  Age: 51 Year
  Sex: Male

DRUGS (3)
  1. CIPROFLOXACIN [Suspect]
     Dosage: 1000 MG, TOTAL DAILY, ORAL
     Route: 048
     Dates: start: 20040115, end: 20040119
  2. PREVISCAN (FLUINDIONE) [Suspect]
     Indication: DEEP VEIN THROMBOSIS
     Dosage: 10 MG, TOTAL DAILY, ORAL
     Route: 048
     Dates: start: 20030915, end: 20040119
  3. FRAXIPARINE [Concomitant]

REACTIONS (5)
  - OVERDOSE [None]
  - PERICARDIAL EFFUSION [None]
  - PERICARDIAL HAEMORRHAGE [None]
  - PERICARDITIS [None]
  - PROTHROMBIN TIME SHORTENED [None]
